FAERS Safety Report 4674775-0 (Version None)
Quarter: 2005Q2

REPORT INFORMATION
  Report Type: 
  Country: None (occurrence: None)
  Receive Date: 20050526
  Receipt Date: 20050421
  Transmission Date: 20051028
  Serious: Yes (Hospitalization)
  Sender: FDA-Public Use
  Company Number: 2005PK00685

PATIENT
  Sex: Female

DRUGS (1)
  1. ARIMIDEX [Suspect]
     Indication: BREAST CANCER
     Dates: start: 20040601

REACTIONS (6)
  - CARDIOVASCULAR DISORDER [None]
  - DIARRHOEA [None]
  - GINGIVAL BLEEDING [None]
  - HEADACHE [None]
  - HOT FLUSH [None]
  - VIRAL INFECTION [None]
